FAERS Safety Report 5710041-X (Version None)
Quarter: 2008Q2

REPORT INFORMATION
  Report Type: 
  Country: None (occurrence: None)
  Receive Date: 20080418
  Receipt Date: 20070920
  Transmission Date: 20081010
  Serious: No
  Sender: FDA-Public Use
  Company Number: US-ASTRAZENECA-2007UW22158

PATIENT
  Age: 69 Year
  Sex: Female
  Weight: 79.4 kg

DRUGS (4)
  1. METOPROLOL SUCCINATE [Suspect]
     Route: 048
  2. LIPITOR [Concomitant]
  3. COUMADIN [Concomitant]
  4. SINGULAIR [Concomitant]

REACTIONS (1)
  - BLOOD PRESSURE INCREASED [None]
